FAERS Safety Report 10388923 (Version 1)
Quarter: 2014Q1

REPORT INFORMATION
  Report Type: Spontaneous
  Country: US (occurrence: None)
  Receive Date: 20140306
  Receipt Date: 20140306
  Transmission Date: 20141002
  Serious: Yes (Hospitalization)
  Sender: FDA-Public Use
  Company Number: 163-21880-13021842

PATIENT
  Age: 65 Year
  Sex: Male

DRUGS (9)
  1. REVLIMID (LENALIDOMIDE) (15 MILLIGRAM, CAPSULES) [Suspect]
     Indication: PLASMA CELL MYELOMA
     Dosage: 15 MG, 21 IN 28 D, PO
     Route: 048
     Dates: start: 201006
  2. ACYCLOVIR (ACICLOVIR) (ACICLOVIR) [Concomitant]
  3. ATENOLOL ? [Concomitant]
  4. ISRADIPINE [Concomitant]
  5. LEVITRA (VARDENAFIL HYDROCHLORIDE) [Concomitant]
  6. MYCELEX TROCHE (CLOTRIMAZOLE) [Concomitant]
  7. NEURON (GABAPENTIN) [Concomitant]
  8. SOMA (CARISPRODOL) [Concomitant]
  9. SYNTHROID (LEVOTHYROIDISM) [Concomitant]

REACTIONS (3)
  - Diverticulitis [None]
  - Diarrhoea [None]
  - Malaise [None]
